FAERS Safety Report 8142370-7 (Version None)
Quarter: 2012Q1

REPORT INFORMATION
  Report Type: 
  Country: None (occurrence: None)
  Receive Date: 20120216
  Receipt Date: 20120209
  Transmission Date: 20120608
  Serious: Yes (Other)
  Sender: FDA-Public Use
  Company Number: PHHY2012BR011361

PATIENT
  Sex: Male

DRUGS (1)
  1. TEGRETOL-XR [Suspect]
     Dosage: 400 MG, UNK

REACTIONS (4)
  - EPILEPSY [None]
  - SOMNOLENCE [None]
  - TREMOR [None]
  - HEADACHE [None]
